FAERS Safety Report 8907559 (Version 1)
Quarter: 2012Q4

REPORT INFORMATION
  Report Type: 
  Country: US (occurrence: US)
  Receive Date: 20121114
  Receipt Date: 20121114
  Transmission Date: 20130627
  Serious: Yes (Hospitalization, Other)
  Sender: FDA-Public Use
  Company Number: US-PFIZER INC-2012281380

PATIENT
  Age: 74 Year
  Sex: Male
  Weight: 73.92 kg

DRUGS (1)
  1. VIAGRA [Suspect]
     Indication: ERECTILE DYSFUNCTION
     Dosage: UNK, as needed
     Route: 048

REACTIONS (1)
  - Prostate cancer [Not Recovered/Not Resolved]
